FAERS Safety Report 9523979 (Version 1)
Quarter: 2013Q1

REPORT INFORMATION
  Report Type: Spontaneous
  Country: US (occurrence: None)
  Receive Date: 20130313
  Receipt Date: 20130313
  Transmission Date: 20140127
  Serious: Yes (Other)
  Sender: FDA-Public Use
  Company Number: 1000030119

PATIENT
  Age: 45 Year
  Sex: Male

DRUGS (2)
  1. SAVELLA [Suspect]
     Route: 048
     Dates: start: 201203, end: 201203
  2. TRAZODONE (TRAZODONE) (TRAZODONE) [Concomitant]

REACTIONS (1)
  - Insomnia [None]
